FAERS Safety Report 11273854 (Version 2)
Quarter: 2015Q3

REPORT INFORMATION
  Report Type: Report from Study
  Country: JP (occurrence: JP)
  Receive Date: 20150715
  Receipt Date: 20150831
  Transmission Date: 20151125
  Serious: Yes (Life-Threatening, Hospitalization)
  Sender: FDA-Public Use
  Company Number: JP-PFIZER INC-2015231294

PATIENT
  Age: 50 Year
  Sex: Female

DRUGS (11)
  1. LANDSEN [Concomitant]
     Active Substance: CLONAZEPAM
     Dosage: 1 MG, 1X/DAY
     Route: 048
  2. MOHRUS [Concomitant]
     Active Substance: KETOPROFEN
     Dosage: 40 MG, 1X/DAY
     Route: 061
     Dates: start: 20140623
  3. LITIOMAL [Concomitant]
     Active Substance: LITHIUM CARBONATE
     Dosage: 600 MG, 3X/DAY
     Route: 048
  4. BICAMOL [Concomitant]
     Active Substance: BIPERIDEN HYDROCHLORIDE
     Dosage: 6 MG, 3X/DAY
  5. TOVIAZ [Concomitant]
     Active Substance: FESOTERODINE FUMARATE
     Dosage: 4 MG, 1X/DAY
     Route: 048
  6. BI-SIFROL [Concomitant]
     Active Substance: PRAMIPEXOLE
     Dosage: 1 MG, 2X/DAY
     Route: 048
  7. DEPAS [Concomitant]
     Active Substance: ETIZOLAM
     Dosage: 1 MG, AS NEEDED
     Route: 048
  8. PURSENNID /00571902/ [Concomitant]
     Active Substance: SENNOSIDES A AND B
     Dosage: 48 MG, 1X/DAY
     Route: 048
  9. ABILIFY [Concomitant]
     Active Substance: ARIPIPRAZOLE
     Dosage: 6 MG, 1X/DAY
     Route: 048
  10. CRIZOTINIB [Suspect]
     Active Substance: CRIZOTINIB
     Indication: NON-SMALL CELL LUNG CANCER
     Dosage: 250 MG, 2X/DAY
     Route: 048
     Dates: start: 20140606
  11. HIRNAMIN /00038602/ [Concomitant]
     Dosage: 10 MG, 1X/DAY
     Route: 048

REACTIONS (1)
  - Appendicitis [Recovered/Resolved]

NARRATIVE: CASE EVENT DATE: 20140909
